FAERS Safety Report 24816873 (Version 2)
Quarter: 2025Q1

REPORT INFORMATION
  Report Type: Report from Study
  Country: US (occurrence: US)
  Receive Date: 20250107
  Receipt Date: 20250125
  Transmission Date: 20250408
  Serious: Yes (Hospitalization, Other)
  Sender: ABBVIE
  Company Number: US-ABBVIE-6073575

PATIENT
  Age: 74 Year
  Sex: Female

DRUGS (2)
  1. RINVOQ [Suspect]
     Active Substance: UPADACITINIB
     Indication: Dermatitis atopic
     Route: 048
     Dates: start: 202404, end: 202412
  2. RINVOQ [Suspect]
     Active Substance: UPADACITINIB
     Indication: Dermatitis atopic
     Route: 048
     Dates: start: 20241207

REACTIONS (21)
  - Colitis [Recovered/Resolved]
  - Rotavirus infection [Recovered/Resolved]
  - Diarrhoea haemorrhagic [Recovered/Resolved]
  - Blood pressure increased [Recovered/Resolved]
  - Urinary tract infection [Recovered/Resolved]
  - Blood test abnormal [Unknown]
  - Pollakiuria [Recovered/Resolved]
  - Discomfort [Recovered/Resolved]
  - Dysuria [Recovered/Resolved]
  - Pollakiuria [Not Recovered/Not Resolved]
  - Urinary tract infection [Recovered/Resolved]
  - Dysuria [Recovered/Resolved]
  - Influenza [Recovered/Resolved]
  - Pollakiuria [Recovered/Resolved]
  - Dysuria [Recovered/Resolved]
  - Urinary tract infection [Recovered/Resolved]
  - Urinary tract infection [Recovered/Resolved]
  - Dysuria [Recovered/Resolved]
  - Pollakiuria [Recovered/Resolved]
  - Bronchitis [Recovered/Resolved]
  - Influenza [Recovered/Resolved]

NARRATIVE: CASE EVENT DATE: 20240101
